FAERS Safety Report 9417527 (Version 1)
Quarter: 2013Q3

REPORT INFORMATION
  Report Type: Spontaneous
  Country: US (occurrence: None)
  Receive Date: 20130722
  Receipt Date: 20130722
  Transmission Date: 20140515
  Serious: Yes (Hospitalization)
  Sender: FDA-Public Use
  Company Number: None

PATIENT
  Age: 28 Year
  Sex: Female
  Weight: 55.34 kg

DRUGS (1)
  1. MIRENA IUD [Suspect]
     Indication: UTERINE PERFORATION
     Dosage: UTERINE
     Dates: start: 20130129, end: 20120308

REACTIONS (2)
  - Uterine perforation [None]
  - Device dislocation [None]
